FAERS Safety Report 4660507-9 (Version None)
Quarter: 2005Q2

REPORT INFORMATION
  Report Type: 
  Country: None (occurrence: None)
  Receive Date: 20050511
  Receipt Date: 20050511
  Transmission Date: 20051028
  Serious: Yes (Other)
  Sender: FDA-Public Use
  Company Number: None

PATIENT
  Age: 57 Year
  Sex: Female
  Weight: 68.0396 kg

DRUGS (1)
  1. METHOCARBAMOL [Suspect]
     Indication: MUSCLE SPASMS
     Dosage: 750MG  3 PILLS 4X/DAY  ORAL
     Route: 048
     Dates: start: 20050429, end: 20050504

REACTIONS (5)
  - DRUG DISPENSING ERROR [None]
  - INCORRECT DOSE ADMINISTERED [None]
  - INCORRECT DRUG ADMINISTRATION RATE [None]
  - MEDICATION ERROR [None]
  - TREATMENT NONCOMPLIANCE [None]
